FAERS Safety Report 11558494 (Version 1)
Quarter: 2015Q3

REPORT INFORMATION
  Report Type: Report from Study
  Country: US (occurrence: US)
  Receive Date: 20150928
  Receipt Date: 20150928
  Transmission Date: 20151125
  Serious: No
  Sender: FDA-Public Use
  Company Number: US-AMGEN-USASL2015099017

PATIENT
  Sex: Female

DRUGS (1)
  1. ENBREL [Suspect]
     Active Substance: ETANERCEPT
     Indication: RHEUMATOID ARTHRITIS
     Dosage: UNK
     Route: 065

REACTIONS (10)
  - Gait disturbance [Unknown]
  - Arthralgia [Unknown]
  - Chest pain [Unknown]
  - Back pain [Unknown]
  - Feeling abnormal [Unknown]
  - Mobility decreased [Unknown]
  - Drug effect decreased [Unknown]
  - Pain in extremity [Unknown]
  - Musculoskeletal stiffness [Unknown]
  - Burning sensation [Unknown]
